FAERS Safety Report 19098789 (Version 4)
Quarter: 2021Q3

REPORT INFORMATION
  Report Type: Spontaneous
  Country: DE (occurrence: DE)
  Receive Date: 20210406
  Receipt Date: 20210712
  Transmission Date: 20211014
  Serious: Yes (Hospitalization)
  Sender: FDA-Public Use
  Company Number: DE-PFIZER INC-2021357662

PATIENT
  Age: 81 Year
  Sex: Female
  Weight: 43 kg

DRUGS (18)
  1. APIXABAN [Suspect]
     Active Substance: APIXABAN
     Dosage: 2.5 MG, 2X/DAY
  2. AMLODIPIN GENERICS [Concomitant]
     Active Substance: AMLODIPINE BESYLATE
     Dosage: FREQ:12 H;5 MG, 1?0?1?0
  3. FUROSEMID [Concomitant]
     Active Substance: FUROSEMIDE
     Dosage: 40 MG, 2?2?0?0
  4. NATRIUMHYDROGENCARBONAT [Concomitant]
     Active Substance: SODIUM BICARBONATE
     Dosage: 500 MG, 1?0?0?0
  5. SERTRALINE HCL [Suspect]
     Active Substance: SERTRALINE HYDROCHLORIDE
     Dosage: 25 MG, 1?0?0?0
  6. LATANOPROST. [Concomitant]
     Active Substance: LATANOPROST
     Dosage: UNK, 1X/DAY (0?0?1?0)
     Route: 047
  7. COLECALCIFEROL [Concomitant]
     Active Substance: CHOLECALCIFEROL
     Dosage: 2000 IU, 2X MONTH, 1X
  8. FUROSEMIDE. [Concomitant]
     Active Substance: FUROSEMIDE
  9. DEFERASIROX. [Concomitant]
     Active Substance: DEFERASIROX
     Dosage: 180 MG, 2?0?0?0
  10. ERYTHROPOIETIN [Concomitant]
     Active Substance: ERYTHROPOIETIN
     Dosage: FREQ:14 D;100 UG/EVERY 14 DAYS 1X
     Route: 058
  11. ALLOPURINOL. [Concomitant]
     Active Substance: ALLOPURINOL
     Dosage: 100 MG, 1?0?0?0
  12. METOPROLOL. [Concomitant]
     Active Substance: METOPROLOL
     Dosage: FREQ:12 H;47.5 MG, 1?0?1?0
  13. VITAMIN D [COLECALCIFEROL] [Concomitant]
     Active Substance: CHOLECALCIFEROL
     Dosage: 2000 IU TWICE PER MONTH
  14. FEBUXOSTAT. [Concomitant]
     Active Substance: FEBUXOSTAT
     Dosage: 80 MG/EVERY OTHER DAY, 0.5?0?0?0
  15. SPIRONOLACTON [Concomitant]
     Active Substance: SPIRONOLACTONE
     Dosage: 25 MG/EVERY 2, 1?0?0?0
  16. INDAPAMID [Concomitant]
     Active Substance: INDAPAMIDE
     Dosage: FREQ:{ASNECESSARY};2.5 MG, AS NEEDED UP TO 2 X DAY
  17. URAPIDIL [Concomitant]
     Active Substance: URAPIDIL
     Dosage: FREQ:12 H;30 MG, 1?0?1?0
  18. AMLODIPINE [Concomitant]
     Active Substance: AMLODIPINE BESYLATE

REACTIONS (3)
  - Anaemia [Recovering/Resolving]
  - Haemorrhoidal haemorrhage [Recovering/Resolving]
  - Pallor [Recovering/Resolving]
